FAERS Safety Report 8223933-7 (Version None)
Quarter: 2012Q1

REPORT INFORMATION
  Report Type: 
  Country: None (occurrence: None)
  Receive Date: 20120321
  Receipt Date: 20120320
  Transmission Date: 20120608
  Serious: Yes (Death)
  Sender: FDA-Public Use
  Company Number: GB-PFIZER INC-2011301703

PATIENT
  Sex: Female
  Weight: 2.86 kg

DRUGS (1)
  1. SERTRALINE HYDROCHLORIDE [Suspect]
     Dosage: 50 MG, 1X/DAY
     Route: 064

REACTIONS (2)
  - NEONATAL ASPHYXIA [None]
  - MATERNAL EXPOSURE TIMING UNSPECIFIED [None]
